FAERS Safety Report 10043258 (Version 1)
Quarter: 2014Q1

REPORT INFORMATION
  Report Type: Spontaneous
  Country: US (occurrence: None)
  Receive Date: 20140327
  Receipt Date: 20140327
  Transmission Date: 20141002
  Serious: Yes (Other)
  Sender: FDA-Public Use
  Company Number: None

PATIENT
  Sex: Male
  Weight: 1.81 kg

DRUGS (1)
  1. MAGNESIUM SULFATE [Suspect]
     Indication: PREMATURE LABOUR
     Dates: start: 20001231, end: 20010122

REACTIONS (7)
  - Maternal drugs affecting foetus [None]
  - Placental transfusion syndrome [None]
  - Premature baby [None]
  - Apnoea neonatal [None]
  - Drug administration error [None]
  - Hand fracture [None]
  - Lower limb fracture [None]
